FAERS Safety Report 10801947 (Version 1)
Quarter: 2015Q1

REPORT INFORMATION
  Report Type: Spontaneous
  Country: TW (occurrence: TW)
  Receive Date: 20150217
  Receipt Date: 20150217
  Transmission Date: 20150721
  Serious: Yes (Other)
  Sender: FDA-Public Use
  Company Number: TW-CIPLA LTD.-2015TW01131

PATIENT

DRUGS (2)
  1. RISPERIDONE. [Suspect]
     Active Substance: RISPERIDONE
     Dosage: 5 MG, QD
  2. DULOXETINE [Suspect]
     Active Substance: DULOXETINE
     Dosage: 60 MG, QD

REACTIONS (4)
  - Weight increased [Recovered/Resolved]
  - Increased appetite [Recovered/Resolved]
  - Psychiatric symptom [Recovered/Resolved]
  - Metabolic syndrome [Recovered/Resolved]
